FAERS Safety Report 17534512 (Version 1)
Quarter: 2020Q1

REPORT INFORMATION
  Report Type: Spontaneous
  Country: FR (occurrence: FR)
  Receive Date: 20200312
  Receipt Date: 20200312
  Transmission Date: 20200409
  Serious: Yes (Hospitalization)
  Sender: FDA-Public Use
  Company Number: FR-MYLANLABS-2020M1027056

PATIENT
  Age: 37 Year
  Sex: Female
  Weight: 50 kg

DRUGS (16)
  1. GENTAMICINE                        /00047101/ [Suspect]
     Active Substance: GENTAMICIN
     Indication: DERMO-HYPODERMITIS
     Dosage: VOIR COMMENTAIRE
     Route: 042
     Dates: start: 20191215, end: 20191216
  2. KETOPROFENE                        /00321701/ [Suspect]
     Active Substance: KETOPROFEN
     Indication: PRODUCT USED FOR UNKNOWN INDICATION
     Dosage: 200 MILLIGRAM, QD
     Route: 048
     Dates: start: 20191215
  3. SERESTA [Concomitant]
     Active Substance: OXAZEPAM
     Dosage: 3 DOSAGE FORM, QD
     Route: 048
  4. MORPHINE [Concomitant]
     Active Substance: MORPHINE
     Dosage: UNK
     Route: 042
     Dates: start: 20191214
  5. DROPERIDOL. [Concomitant]
     Active Substance: DROPERIDOL
     Route: 042
  6. PRIMPERAN [Concomitant]
     Active Substance: METOCLOPRAMIDE HYDROCHLORIDE
     Route: 042
  7. TAZOCILLINE [Suspect]
     Active Substance: PIPERACILLIN SODIUM\TAZOBACTAM SODIUM
     Indication: DERMO-HYPODERMITIS
     Dosage: VOIR COMMENTAIRE
     Route: 042
     Dates: start: 20191215, end: 20191218
  8. ONDANSETRON [Concomitant]
     Active Substance: ONDANSETRON
     Route: 042
  9. OXYCODONE [Concomitant]
     Active Substance: OXYCODONE
     Dosage: 40 MILLIGRAM, QD
     Route: 048
  10. PREGABALINE [Concomitant]
     Active Substance: PREGABALIN
     Route: 048
  11. VANCOMYCIN [Suspect]
     Active Substance: VANCOMYCIN
     Indication: DERMO-HYPODERMITIS
     Dosage: VOIR COMMENTAIRE
     Route: 042
     Dates: start: 20191215, end: 20191217
  12. PARACETAMOL [Concomitant]
     Active Substance: ACETAMINOPHEN
     Dosage: 4 GRAM, QD
     Route: 048
  13. VOGALENE [Concomitant]
     Active Substance: METOPIMAZINE
     Route: 048
  14. NEFOPAM                            /00396102/ [Concomitant]
     Active Substance: NEFOPAM HYDROCHLORIDE
     Route: 042
  15. LOVENOX [Concomitant]
     Active Substance: ENOXAPARIN SODIUM
     Dosage: ANTI-XA/0,4 ML, SOLUTION INJECTABLE EN CARTOUCHE
     Route: 058
     Dates: start: 20191216
  16. LAROXYL [Concomitant]
     Active Substance: AMITRIPTYLINE HYDROCHLORIDE
     Dosage: 9 MILLIGRAM, QD
     Route: 048
     Dates: start: 20191215

REACTIONS (2)
  - Hepatic enzyme increased [Recovered/Resolved]
  - Acute kidney injury [Recovered/Resolved]

NARRATIVE: CASE EVENT DATE: 20191217
